FAERS Safety Report 8548300-8 (Version None)
Quarter: 2012Q3

REPORT INFORMATION
  Report Type: 
  Country: None (occurrence: None)
  Receive Date: 20120730
  Receipt Date: 20120717
  Transmission Date: 20120928
  Serious: No
  Sender: FDA-Public Use
  Company Number: US-JNJFOC-20120709941

PATIENT
  Sex: Female

DRUGS (11)
  1. PROMETHAZINE [Concomitant]
     Indication: NAUSEA
     Route: 048
  2. MORPHINE SULFATE [Concomitant]
     Indication: BREAKTHROUGH PAIN
     Dosage: 15 MG ONE OR TWO EVERY 4-6 HOURS
     Route: 048
  3. FLEXERIL [Concomitant]
     Indication: MUSCLE RELAXANT THERAPY
     Route: 048
  4. KADIAN [Concomitant]
     Route: 048
     Dates: start: 20080101
  5. SYNTHROID [Concomitant]
     Indication: HYPOTHYROIDISM
     Route: 048
  6. RESTORIL [Concomitant]
     Indication: SLEEP DISORDER
     Route: 048
  7. DILAUDID [Concomitant]
     Indication: PROCEDURAL PAIN
     Route: 048
     Dates: start: 20120601
  8. FENTANYL-100 [Suspect]
     Indication: PAIN
     Route: 062
     Dates: start: 20120710
  9. VALIUM [Concomitant]
     Route: 048
  10. FIORICET [Concomitant]
     Indication: PAIN
     Route: 048
  11. KADIAN [Concomitant]
     Indication: PAIN
     Route: 048
     Dates: start: 20080101

REACTIONS (5)
  - FEELING COLD [None]
  - WRONG TECHNIQUE IN DRUG USAGE PROCESS [None]
  - FEELING HOT [None]
  - APPLICATION SITE DISCOLOURATION [None]
  - RASH [None]
